FAERS Safety Report 12226641 (Version 1)
Quarter: 2016Q1

REPORT INFORMATION
  Report Type: Other
  Country: US (occurrence: US)
  Receive Date: 20160331
  Receipt Date: 20160331
  Transmission Date: 20160526
  Serious: Yes (Other)
  Sender: FDA-Public Use
  Company Number: US-GUTHY-RENKER LLC-1050050

PATIENT
  Age: 45 Year

DRUGS (4)
  1. PROACTIVPLUS SKIN SMOOTHING EXFOLIATOR [Suspect]
     Active Substance: BENZOYL PEROXIDE
     Indication: ACNE
     Route: 061
     Dates: start: 20151015, end: 20160201
  2. ALEVE [Concomitant]
     Active Substance: NAPROXEN SODIUM
  3. MULTIVITAMINS [Concomitant]
     Active Substance: VITAMINS
  4. PROACTIV PLUS CLEANSING BODY BAR [Suspect]
     Active Substance: SALICYLIC ACID
     Route: 061
     Dates: start: 20151015, end: 20160201

REACTIONS (5)
  - Eye irritation [Recovered/Resolved]
  - Hyperventilation [None]
  - Palpitations [None]
  - Rash [None]
  - Eye irritation [None]

NARRATIVE: CASE EVENT DATE: 20160203
